FAERS Safety Report 9453962 (Version 1)
Quarter: 2013Q3

REPORT INFORMATION
  Report Type: Spontaneous
  Country: US (occurrence: US)
  Receive Date: 20130812
  Receipt Date: 20130812
  Transmission Date: 20140515
  Serious: No
  Sender: FDA-Public Use
  Company Number: US-THROMBOGENICS INC-JET-2013-154

PATIENT
  Sex: 0

DRUGS (6)
  1. JETREA [Suspect]
     Indication: VITREOUS ADHESIONS
     Dosage: 0.125 MG, ONE TIME DOSE
     Route: 031
     Dates: start: 20130522, end: 20130522
  2. JETREA [Suspect]
     Indication: MACULAR HOLE
  3. DEPAKOTE [Concomitant]
     Indication: ANXIETY
     Dosage: 1000 MG, QD
     Route: 031
  4. PAXIL                              /00500401/ [Concomitant]
     Indication: ANXIETY
     Dosage: 10 MG, QD
     Route: 031
  5. ZOCOR [Concomitant]
     Indication: PRODUCT USED FOR UNKNOWN INDICATION
     Dosage: 25 MG, QD
  6. TRAZODONE [Concomitant]
     Indication: ANXIETY
     Dosage: 10 MG, QD

REACTIONS (2)
  - Vision blurred [Not Recovered/Not Resolved]
  - Photopsia [Not Recovered/Not Resolved]
